FAERS Safety Report 23278480 (Version 1)
Quarter: 2023Q4

REPORT INFORMATION
  Report Type: Other
  Country: CN (occurrence: CN)
  Receive Date: 20231208
  Receipt Date: 20231208
  Transmission Date: 20240109
  Serious: Yes (Other)
  Sender: FDA-Public Use
  Company Number: CN-GE HEALTHCARE-2023CSU011147

PATIENT
  Age: 56 Year
  Sex: Male

DRUGS (3)
  1. OMNIPAQUE [Suspect]
     Active Substance: IOHEXOL
     Indication: Diagnostic procedure
     Dosage: 80 ML, SINGLE
     Route: 042
     Dates: start: 20231129, end: 20231129
  2. OMNIPAQUE [Suspect]
     Active Substance: IOHEXOL
     Indication: Renal cyst
  3. OMNIPAQUE [Suspect]
     Active Substance: IOHEXOL
     Indication: Renal neoplasm

REACTIONS (1)
  - Sneezing [Recovering/Resolving]

NARRATIVE: CASE EVENT DATE: 20231129
